FAERS Safety Report 15037047 (Version 2)
Quarter: 2018Q2

REPORT INFORMATION
  Report Type: Report from Study
  Country: US (occurrence: US)
  Receive Date: 20180620
  Receipt Date: 20180625
  Transmission Date: 20180711
  Serious: Yes (Life-Threatening, Hospitalization)
  Sender: FDA-Public Use
  Company Number: US-EISAI MEDICAL RESEARCH-EC-2018-041525

PATIENT
  Age: 53 Year
  Sex: Female
  Weight: 88.8 kg

DRUGS (21)
  1. ZYRTEC [Concomitant]
     Active Substance: CETIRIZINE HYDROCHLORIDE
  2. KLONOPIN [Concomitant]
     Active Substance: CLONAZEPAM
  3. ATIVAN [Concomitant]
     Active Substance: LORAZEPAM
  4. NYSTATIN. [Concomitant]
     Active Substance: NYSTATIN
  5. ADVAIR DISKUS [Concomitant]
     Active Substance: FLUTICASONE PROPIONATE\SALMETEROL XINAFOATE
  6. ZOFRAN [Concomitant]
     Active Substance: ONDANSETRON HYDROCHLORIDE
  7. AMBIEN [Concomitant]
     Active Substance: ZOLPIDEM TARTRATE
  8. PERIDEX [Concomitant]
     Active Substance: CHLORHEXIDINE GLUCONATE
  9. VITAMIN D3 [Concomitant]
     Active Substance: CHOLECALCIFEROL
  10. ALBUTEROL. [Concomitant]
     Active Substance: ALBUTEROL
  11. NASONEX [Concomitant]
     Active Substance: MOMETASONE FUROATE
  12. MIRALAX [Concomitant]
     Active Substance: POLYETHYLENE GLYCOL 3350
  13. COLACE [Concomitant]
     Active Substance: DOCUSATE SODIUM
  14. ERIBULIN [Suspect]
     Active Substance: ERIBULIN
     Indication: BREAST CANCER METASTATIC
     Route: 041
     Dates: start: 20180606
  15. BACILLUS COAGULANS INULIN [Concomitant]
  16. OXYCODONE [Concomitant]
     Active Substance: OXYCODONE
  17. SENOKOT [Concomitant]
     Active Substance: SENNOSIDES
  18. EPIPEN [Concomitant]
     Active Substance: EPINEPHRINE
  19. COMPAZINE [Concomitant]
     Active Substance: PROCHLORPERAZINE MALEATE
  20. ADVIL [Concomitant]
     Active Substance: IBUPROFEN
  21. ZOLOFT [Concomitant]
     Active Substance: SERTRALINE HYDROCHLORIDE

REACTIONS (2)
  - Neutropenia [Recovered/Resolved]
  - Febrile neutropenia [Recovered/Resolved]

NARRATIVE: CASE EVENT DATE: 20180618
